FAERS Safety Report 7583108-1 (Version None)
Quarter: 2011Q2

REPORT INFORMATION
  Report Type: 
  Country: None (occurrence: None)
  Receive Date: 20110630
  Receipt Date: 20100830
  Transmission Date: 20111010
  Serious: No
  Sender: FDA-Public Use
  Company Number: US-ASTRAZENECA-2010SE40737

PATIENT
  Age: 83 Year
  Sex: Male

DRUGS (2)
  1. ZOLADEX [Suspect]
     Indication: PROSTATE CANCER
     Route: 058
     Dates: start: 20100501
  2. MANY CONCOMITANT MEDICATIONS [Concomitant]

REACTIONS (2)
  - DELIRIUM [None]
  - PARANOIA [None]
